FAERS Safety Report 6179377-5 (Version None)
Quarter: 2009Q2

REPORT INFORMATION
  Report Type: 
  Country: None (occurrence: None)
  Receive Date: 20090505
  Receipt Date: 20090424
  Transmission Date: 20091009
  Serious: Yes (Other)
  Sender: FDA-Public Use
  Company Number: US-JNJFOC-20090406282

PATIENT
  Sex: Female
  Weight: 128.82 kg

DRUGS (2)
  1. REMICADE [Suspect]
     Dosage: HAS RECEIVED INFLIXIMAB FOR SEVERAL YEARS
     Route: 042
  2. REMICADE [Suspect]
     Indication: CROHN'S DISEASE
     Route: 042

REACTIONS (8)
  - ARTHRALGIA [None]
  - INSOMNIA [None]
  - LYME DISEASE [None]
  - MYALGIA [None]
  - PAIN [None]
  - PAIN OF SKIN [None]
  - PROTEIN TOTAL INCREASED [None]
  - SHOULDER OPERATION [None]
